FAERS Safety Report 9348770 (Version 1)
Quarter: 2013Q2

REPORT INFORMATION
  Report Type: Spontaneous
  Country: US (occurrence: US)
  Receive Date: 20130614
  Receipt Date: 20130614
  Transmission Date: 20140414
  Serious: Yes (Disabling, Other)
  Sender: FDA-Public Use
  Company Number: US-PFIZER INC-2013178651

PATIENT
  Age: 46 Year
  Sex: Female

DRUGS (1)
  1. ALDACTONE [Suspect]
     Dosage: 25 MG, UNK
     Route: 048

REACTIONS (2)
  - Hepatic failure [Unknown]
  - Hepatic encephalopathy [Unknown]
